FAERS Safety Report 13588875 (Version 2)
Quarter: 2017Q3

REPORT INFORMATION
  Report Type: Spontaneous
  Country: JP (occurrence: JP)
  Receive Date: 20170529
  Receipt Date: 20170720
  Transmission Date: 20171127
  Serious: Yes (Hospitalization, Other)
  Sender: FDA-Public Use
  Company Number: JP-009507513-1705JPN001566J

PATIENT
  Age: 0 Year
  Sex: Male
  Weight: 2.47 kg

DRUGS (2)
  1. ZOLPIDEM TARTRATE. [Suspect]
     Active Substance: ZOLPIDEM TARTRATE
     Dosage: 5 UNK, UNK
     Route: 064
  2. BELSOMRA [Suspect]
     Active Substance: SUVOREXANT
     Dosage: UNK MG, UNK
     Route: 064

REACTIONS (5)
  - Hypothyroidism [Recovered/Resolved]
  - Hypopituitarism [Unknown]
  - Jaundice neonatal [Unknown]
  - Osteogenesis imperfecta [Unknown]
  - Foetal exposure during pregnancy [Recovered/Resolved]

NARRATIVE: CASE EVENT DATE: 2017
